FAERS Safety Report 8015753-3 (Version None)
Quarter: 2011Q4

REPORT INFORMATION
  Report Type: 
  Country: None (occurrence: None)
  Receive Date: 20111230
  Receipt Date: 20111227
  Transmission Date: 20120403
  Serious: Yes (Other)
  Sender: FDA-Public Use
  Company Number: PHHY2011ES112594

PATIENT

DRUGS (2)
  1. METFORMIN HCL [Suspect]
     Indication: TYPE 2 DIABETES MELLITUS
     Dosage: UNK,
  2. RASILEZ [Suspect]
     Indication: HYPERTENSION
     Dosage: UNK,

REACTIONS (1)
  - CEREBROVASCULAR ACCIDENT [None]
